FAERS Safety Report 24402535 (Version 4)
Quarter: 2024Q4

REPORT INFORMATION
  Report Type: Spontaneous
  Country: US (occurrence: US)
  Receive Date: 20241007
  Receipt Date: 20241226
  Transmission Date: 20250114
  Serious: Yes (Hospitalization, Other)
  Sender: ROCHE
  Company Number: US-ROCHE-10000092138

PATIENT
  Age: 53 Year
  Sex: Female
  Weight: 86.18 kg

DRUGS (15)
  1. XOLAIR [Suspect]
     Active Substance: OMALIZUMAB
     Indication: Asthma
     Route: 058
     Dates: start: 2019
  2. XOLAIR [Suspect]
     Active Substance: OMALIZUMAB
  3. SYMBICORT [Concomitant]
     Active Substance: BUDESONIDE\FORMOTEROL FUMARATE DIHYDRATE
     Indication: Asthma
     Dosage: 2 PUFFS TWICE A DAY, IN MORNING AND EVENING
     Route: 055
  4. FLOVENT HFA [Concomitant]
     Active Substance: FLUTICASONE PROPIONATE
     Indication: Asthma
     Dosage: 2 PUFFS TWICE A DAY
     Route: 055
  5. ATROVENT [Concomitant]
     Active Substance: IPRATROPIUM BROMIDE
     Indication: Asthma
     Dosage: 2 PUFFS IN MORNING AND 2 PUFFS IN EVENING
     Route: 055
  6. VENTOLIN [Concomitant]
     Active Substance: ALBUTEROL SULFATE
     Indication: Asthma
     Route: 055
  7. MONTELUKAST [Concomitant]
     Active Substance: MONTELUKAST SODIUM
     Indication: Asthma
     Route: 048
  8. LIOTHYRONINE [Concomitant]
     Active Substance: LIOTHYRONINE
     Route: 048
  9. LEVOTHYROXINE [Concomitant]
     Active Substance: LEVOTHYROXINE
     Route: 048
  10. LEVOTHYROXINE [Concomitant]
     Active Substance: LEVOTHYROXINE
     Route: 048
  11. FLUOXETINE [Concomitant]
     Active Substance: FLUOXETINE HYDROCHLORIDE
     Route: 048
  12. ALENDRONATE SODIUM [Concomitant]
     Active Substance: ALENDRONATE SODIUM
     Indication: Osteopenia
     Route: 048
  13. BOTOX [Concomitant]
     Active Substance: ONABOTULINUMTOXINA
     Indication: Dystonia
     Dosage: INJECTIONS ON CERVICAL SPINE
     Dates: start: 2004
  14. BACLOFEN [Concomitant]
     Active Substance: BACLOFEN
     Indication: Dystonia
     Route: 048
  15. XYZAL [Concomitant]
     Active Substance: LEVOCETIRIZINE DIHYDROCHLORIDE
     Indication: Hypersensitivity
     Route: 048

REACTIONS (10)
  - Osteopenia [Unknown]
  - Fall [Unknown]
  - Wrist fracture [Recovered/Resolved with Sequelae]
  - Pain [Not Recovered/Not Resolved]
  - COVID-19 [Unknown]
  - Pyrexia [Unknown]
  - Product dose omission issue [Unknown]
  - Device defective [Unknown]
  - Product complaint [Unknown]
  - Respiratory syncytial virus infection [Recovered/Resolved]

NARRATIVE: CASE EVENT DATE: 20210101
